FAERS Safety Report 10140062 (Version 1)
Quarter: 2014Q2

REPORT INFORMATION
  Report Type: Spontaneous
  Country: TN (occurrence: TN)
  Receive Date: 20140429
  Receipt Date: 20140429
  Transmission Date: 20141212
  Serious: Yes (Other)
  Sender: FDA-Public Use
  Company Number: TN-ACTAVIS-2014-08189

PATIENT
  Sex: 0

DRUGS (2)
  1. AGREGEX [Suspect]
     Indication: PRODUCT USED FOR UNKNOWN INDICATION
     Dosage: 2 TABLETS PER DAY
     Route: 048
  2. AGREGEX [Suspect]
     Dosage: 1 TABLE PER DAY

REACTIONS (1)
  - Thrombosis [Unknown]
